FAERS Safety Report 8308249-2 (Version None)
Quarter: 2012Q2

REPORT INFORMATION
  Report Type: 
  Country: None (occurrence: None)
  Receive Date: 20120424
  Receipt Date: 20120416
  Transmission Date: 20120825
  Serious: Yes (Disabling, Other)
  Sender: FDA-Public Use
  Company Number: US-JNJFOC-20120313758

PATIENT
  Sex: Female
  Weight: 68.04 kg

DRUGS (4)
  1. AGGRENOX [Concomitant]
     Dates: start: 20120101, end: 20120101
  2. XARELTO [Suspect]
     Indication: ATRIAL FIBRILLATION
     Route: 048
     Dates: start: 20120120
  3. DIGOXIN [Concomitant]
  4. LASIX [Concomitant]

REACTIONS (2)
  - NEUROPATHY PERIPHERAL [None]
  - RAYNAUD'S PHENOMENON [None]
